FAERS Safety Report 21979674 (Version 3)
Quarter: 2024Q1

REPORT INFORMATION
  Report Type: Spontaneous
  Country: US (occurrence: US)
  Receive Date: 20230210
  Receipt Date: 20240130
  Transmission Date: 20240409
  Serious: Yes (Other)
  Sender: FDA-Public Use
  Company Number: US-TEVA-2023-US-2854178

PATIENT
  Age: 66 Year
  Weight: 81.64 kg

DRUGS (14)
  1. VALSARTAN [Suspect]
     Active Substance: VALSARTAN
     Indication: Hypertension
     Dosage: DOSAGE TEXT: DOSE 320-25 MG, TAKE 1 TABLET BY MOUTH ONCE DAY
     Route: 048
     Dates: start: 20121105, end: 20141011
  2. HYDROCHLOROTHIAZIDE\VALSARTAN [Suspect]
     Active Substance: HYDROCHLOROTHIAZIDE\VALSARTAN
     Indication: Hypertension
     Dosage: DOSAGE TEXT: 320-25 MG, TAKE 1 TABLET BY MOUTH ONCE DAY
     Route: 048
     Dates: start: 20150210, end: 20160418
  3. HYDROCHLOROTHIAZIDE\VALSARTAN [Suspect]
     Active Substance: HYDROCHLOROTHIAZIDE\VALSARTAN
     Indication: Hypertension
     Dosage: DOSAGE TEXT: 320-25 MG, TAKE 1 TABLET BY MOUTH ONCE DAY
     Route: 048
     Dates: start: 20140326, end: 20150213
  4. CARVEDILOL [Concomitant]
     Active Substance: CARVEDILOL
     Indication: Product used for unknown indication
     Dosage: DOSAGE TEXT: TAKE 1 TABLET BY MOUTH TWICE A DAY WITH FOOD
     Route: 048
     Dates: start: 201201
  5. SIMVASTATIN [Concomitant]
     Active Substance: SIMVASTATIN
     Indication: Product used for unknown indication
     Dosage: DOSAGE TEXT: TAKE1 TABLET BY MOUTH ONCE DAILY IN EVENING
     Route: 048
     Dates: start: 201201
  6. NIFEDIPINE [Concomitant]
     Active Substance: NIFEDIPINE
     Indication: Product used for unknown indication
     Dosage: DOSAGE TEXT: ER TABLET, TAKE 1 TABLET BY MOUTH ONCE DAILY
     Route: 048
     Dates: start: 201201
  7. CLOPIDOGREL [Concomitant]
     Active Substance: CLOPIDOGREL BISULFATE
     Indication: Product used for unknown indication
     Dosage: DOSAGE TEXT: TAKE 1 TABLET BY MOUTH ONCE DAILY
     Route: 048
     Dates: start: 201209
  8. HYDRALAZINE [Concomitant]
     Active Substance: HYDRALAZINE HYDROCHLORIDE
     Indication: Product used for unknown indication
     Dosage: TIME INTERVAL: 0.333 DAYS: DOSAGE TEXT: TAKE ONE TABLET BY MOUTH THREE TIMES A DAY WITH FOOD
     Route: 048
     Dates: start: 201304
  9. JANUVIA [Concomitant]
     Active Substance: SITAGLIPTIN PHOSPHATE
     Indication: Product used for unknown indication
     Dosage: DOSAGE TEXT: TABLET TAKE ONE TABLET BY MOUTH ONCE DAILY
     Route: 048
     Dates: start: 201508
  10. METFORMIN HYDROCHLORIDE [Concomitant]
     Active Substance: METFORMIN HYDROCHLORIDE
     Indication: Product used for unknown indication
     Dosage: DOSAGE TEXT: TAKE THREE TABLETS BY MOUTH EVERY MORNING TAKE TWO TABLETS BY MOUTH EVERY EVENING
     Route: 048
     Dates: start: 201201
  11. ACETAMINOPHEN [Concomitant]
     Active Substance: ACETAMINOPHEN
     Indication: Product used for unknown indication
     Dosage: DOSAGE TEXT: TAKE ONE TABLET BY MOUTH EVERY 4 HOURS AS NEEDED
     Route: 048
     Dates: start: 201409
  12. GLIPIZIDE XL [Concomitant]
     Active Substance: GLIPIZIDE
     Indication: Product used for unknown indication
     Dosage: DOSAGE TEXT: TAKE ONE TABLET BY MOUTH TWICE A DAY
     Route: 048
     Dates: start: 201201
  13. HYDROCHLOROTHIAZIDE\VALSARTAN [Suspect]
     Active Substance: HYDROCHLOROTHIAZIDE\VALSARTAN
     Indication: Hypertension
     Dosage: DOSAGE TEXT: 320-25 MG, TAKE 1 TABLET BY MOUTH ONCE DAY
     Route: 048
     Dates: start: 20120104, end: 20121020
  14. HYDROCHLOROTHIAZIDE\VALSARTAN [Suspect]
     Active Substance: HYDROCHLOROTHIAZIDE\VALSARTAN
     Indication: Hypertension
     Dosage: DOSAGE TEXT: 320-25 MG, TAKE 1 TABLET BY MOUTH ONCE DAY
     Route: 048
     Dates: start: 20130216, end: 20150304

REACTIONS (11)
  - Colon cancer [Unknown]
  - Hepatic cancer [Unknown]
  - Bone cancer [Unknown]
  - Lung neoplasm malignant [Unknown]
  - Colon cancer metastatic [Not Recovered/Not Resolved]
  - Metastases to lung [Not Recovered/Not Resolved]
  - Metastases to thorax [Recovering/Resolving]
  - Metastases to liver [Not Recovered/Not Resolved]
  - Metastases to the mediastinum [Unknown]
  - Metastases to bone [Recovering/Resolving]
  - Prostate cancer [Not Recovered/Not Resolved]

NARRATIVE: CASE EVENT DATE: 20180501
